FAERS Safety Report 9177931 (Version 4)
Quarter: 2014Q1

REPORT INFORMATION
  Report Type: Report from Study
  Country: DE (occurrence: DE)
  Receive Date: 20130321
  Receipt Date: 20140103
  Transmission Date: 20141002
  Serious: Yes (Death, Life-Threatening, Hospitalization)
  Sender: FDA-Public Use
  Company Number: DE-PFIZER INC-2013059969

PATIENT
  Age: 75 Year
  Sex: Female

DRUGS (35)
  1. CISPLATIN [Suspect]
     Indication: METASTATIC GASTRIC CANCER
     Dosage: 6.9524 MG (146 MG,1 IN 21 D)
     Route: 041
     Dates: start: 20120327, end: 20120327
  2. CISPLATIN [Suspect]
     Dosage: 4.6667 MG (98 MG,1 IN 21 D)
     Route: 041
     Dates: start: 20120420, end: 20120713
  3. CISPLATIN [Suspect]
     Dosage: UNK
     Route: 041
  4. CISPLATIN [Suspect]
     Dosage: UNK
     Route: 041
  5. CISPLATIN [Suspect]
     Dosage: UNK
     Route: 041
  6. CISPLATIN [Suspect]
     Dosage: UNK
     Route: 041
  7. 5-FU [Suspect]
     Indication: METASTATIC GASTRIC CANCER
     Dosage: 7300 MG,1 IN 21 D
     Route: 041
     Dates: start: 20120327, end: 20120401
  8. 5-FU [Suspect]
     Dosage: 233.3333 MG (4900 MG,1 IN 21 D)
     Route: 041
     Dates: start: 20120420, end: 20120718
  9. 5-FU [Suspect]
     Dosage: UNK
     Route: 041
  10. 5-FU [Suspect]
     Dosage: UNK
     Route: 041
  11. 5-FU [Suspect]
     Dosage: UNK
     Route: 041
  12. 5-FU [Suspect]
     Dosage: UNK
     Route: 041
  13. 5-FU [Suspect]
     Dosage: UNK
     Route: 041
  14. LEVOTHYROXINE [Concomitant]
     Indication: THYROIDECTOMY
     Dosage: UNK
     Dates: start: 2012, end: 20120719
  15. INSUMAN RAPID [Concomitant]
     Indication: DIABETES MELLITUS
     Dosage: AS REQUIRED
     Dates: start: 2012, end: 20120719
  16. LANTUS [Concomitant]
     Indication: DIABETES MELLITUS
     Dosage: AS REQUIRED
     Dates: start: 2012, end: 20120719
  17. TRAMAL [Concomitant]
     Indication: PAIN PROPHYLAXIS
     Dosage: UNK
     Dates: start: 20120307, end: 20120719
  18. MOVICOL [Concomitant]
     Indication: PROPHYLAXIS
     Dosage: UNK
     Dates: start: 20120307, end: 20120719
  19. PANTOZOL [Concomitant]
     Indication: REFLUX GASTRITIS
     Dosage: 40 MG, UNK
     Dates: start: 20120307, end: 20120719
  20. DILTIAZEM [Concomitant]
     Indication: HYPERTENSION
     Dosage: AS REQUIRED
     Dates: start: 20120307, end: 20120719
  21. INDAPAMID [Concomitant]
     Indication: HYPERTENSION
     Dosage: AS REQUIRED
     Dates: start: 20120307, end: 20120719
  22. IBUPROFEN [Concomitant]
     Indication: PAIN PROPHYLAXIS
     Dosage: UNK
     Dates: start: 20120420, end: 20120727
  23. NOVALGIN [Concomitant]
     Indication: PAIN PROPHYLAXIS
     Dosage: UNK
     Dates: start: 20120510, end: 20120727
  24. MCP [Concomitant]
     Indication: PROPHYLAXIS OF NAUSEA AND VOMITING
     Dosage: UNK
     Dates: start: 20120510, end: 20120727
  25. VOMEX A [Concomitant]
     Indication: PROPHYLAXIS OF NAUSEA AND VOMITING
     Dosage: UNK
     Dates: start: 20120510, end: 20120727
  26. ASS [Concomitant]
     Indication: PLATELET AGGREGATION INHIBITION
     Dosage: 100 MG, UNK
     Dates: start: 20120621, end: 20120727
  27. CLEXANE [Concomitant]
     Indication: THROMBOSIS PROPHYLAXIS
     Dosage: 60 MG, AS NEEDED
     Dates: start: 20120710, end: 20120727
  28. CLEXANE [Concomitant]
     Indication: THROMBOSIS PROPHYLAXIS
  29. ALLEVYN ADHESIVE [Concomitant]
     Indication: SKIN ULCER
     Dosage: AS REQUIRED
     Dates: start: 20120712
  30. MORPHINE SULFATE [Concomitant]
     Indication: OESOPHAGEAL PAIN
     Dosage: UNK
     Dates: start: 201207, end: 201207
  31. DIAZEPAM [Concomitant]
     Indication: PAIN PROPHYLAXIS
     Dosage: UNK
     Dates: start: 201207, end: 201207
  32. PICOLAX [Concomitant]
     Indication: CONSTIPATION PROPHYLAXIS
     Dosage: UNK
     Dates: start: 20120712, end: 20120718
  33. METOCLOPRAMIDE [Concomitant]
     Indication: CONSTIPATION PROPHYLAXIS
     Dosage: UNK
     Dates: start: 20120712, end: 20120718
  34. POTASSIUM CHLORIDE [Concomitant]
     Indication: NEPHROPATHY TOXIC
     Dosage: UNK
     Dates: start: 20120713, end: 20120713
  35. MAGNESIUM [Concomitant]
     Indication: NEPHROPATHY TOXIC
     Dosage: UNK
     Dates: start: 20120713, end: 20120713

REACTIONS (2)
  - Sepsis [Fatal]
  - Pancytopenia [Not Recovered/Not Resolved]
